FAERS Safety Report 5312691-1 (Version None)
Quarter: 2007Q2

REPORT INFORMATION
  Report Type: 
  Country: None (occurrence: None)
  Receive Date: 20070430
  Receipt Date: 20070423
  Transmission Date: 20071010
  Serious: Yes (Hospitalization)
  Sender: FDA-Public Use
  Company Number: 2007UW07962

PATIENT
  Age: 52 Year
  Sex: Female
  Weight: 72.6 kg

DRUGS (6)
  1. SEROQUEL [Suspect]
     Indication: BIPOLAR DISORDER
     Route: 048
  2. NOVOLOG [Concomitant]
     Dosage: 4 SHOTS PER DAY (15 UNITS)
  3. LANTUS [Concomitant]
  4. EFFEXOR [Concomitant]
  5. TRICOR [Concomitant]
  6. LISINOPRIL [Concomitant]

REACTIONS (4)
  - DIABETIC COMA [None]
  - DIABETIC KETOACIDOSIS [None]
  - ELECTROCARDIOGRAM QT PROLONGED [None]
  - TORSADE DE POINTES [None]
